FAERS Safety Report 17702603 (Version 1)
Quarter: 2020Q2

REPORT INFORMATION
  Report Type: Other
  Country: AT (occurrence: AT)
  Receive Date: 20200424
  Receipt Date: 20200424
  Transmission Date: 20200714
  Serious: Yes (Hospitalization, Other)
  Sender: FDA-Public Use
  Company Number: AT-CELLTRION INC.-2020AT021792

PATIENT

DRUGS (5)
  1. MODAFINIL. [Concomitant]
     Active Substance: MODAFINIL
     Dosage: EVERY 0.5 DAY
  2. EDRONAX [Concomitant]
     Active Substance: REBOXETINE MESYLATE
     Dosage: EVERY 0.5 DAY
  3. RITUXIMAB (UNKNOWN) [Suspect]
     Active Substance: RITUXIMAB
     Indication: PRODUCT USED FOR UNKNOWN INDICATION
     Route: 065
  4. FAMPYRA [Suspect]
     Active Substance: DALFAMPRIDINE
     Indication: GAIT DISTURBANCE
     Dosage: EVERY 0.5 DAY
     Route: 065
  5. LIORESAL [Concomitant]
     Active Substance: BACLOFEN
     Dosage: EVERY 0.33 DAY

REACTIONS (5)
  - Tremor [Not Recovered/Not Resolved]
  - Bladder disorder [Unknown]
  - Loss of consciousness [Recovered/Resolved]
  - Pulmonary infarction [Recovered/Resolved]
  - Contusion [Recovered/Resolved]

NARRATIVE: CASE EVENT DATE: 202003
